FAERS Safety Report 5276064-2 (Version None)
Quarter: 2007Q1

REPORT INFORMATION
  Report Type: 
  Country: None (occurrence: None)
  Receive Date: 20070326
  Receipt Date: 20070313
  Transmission Date: 20070707
  Serious: Yes (Hospitalization, Other)
  Sender: FDA-Public Use
  Company Number: PHEH2006US14430

PATIENT
  Age: 43 Year
  Sex: Female

DRUGS (1)
  1. VIVELLE-DOT [Suspect]
     Indication: HORMONE REPLACEMENT THERAPY
     Dosage: 0.1MG TWICE WEEKLY
     Route: 062
     Dates: start: 20050501, end: 20061011

REACTIONS (5)
  - ABDOMINOPLASTY [None]
  - BACK PAIN [None]
  - BREAST COSMETIC SURGERY [None]
  - DYSPNOEA [None]
  - PULMONARY EMBOLISM [None]
